FAERS Safety Report 5907806-8 (Version None)
Quarter: 2008Q4

REPORT INFORMATION
  Report Type: 
  Country: None (occurrence: None)
  Receive Date: 20081003
  Receipt Date: 20080923
  Transmission Date: 20090506
  Serious: Yes (Other)
  Sender: FDA-Public Use
  Company Number: US-JNJFOC-20081000245

PATIENT
  Sex: Female

DRUGS (6)
  1. LOPERAMIDE HCL [Suspect]
     Indication: DIARRHOEA
  2. CHANTIX [Suspect]
     Route: 048
  3. CHANTIX [Suspect]
     Indication: SMOKING CESSATION THERAPY
     Route: 048
  4. DONNATAL [Suspect]
     Indication: DIARRHOEA
  5. CALCIUM [Concomitant]
     Indication: BONE DISORDER
  6. EVISTA [Concomitant]
     Indication: BONE DISORDER

REACTIONS (5)
  - CONSTIPATION [None]
  - FLATULENCE [None]
  - MUSCLE SPASMS [None]
  - PAIN [None]
  - RECTAL DISCHARGE [None]
